FAERS Safety Report 7632842-3 (Version None)
Quarter: 2011Q3

REPORT INFORMATION
  Report Type: 
  Country: None (occurrence: None)
  Receive Date: 20110725
  Receipt Date: 20110711
  Transmission Date: 20111222
  Serious: Yes (Other)
  Sender: FDA-Public Use
  Company Number: PHHY2011FR33662

PATIENT
  Sex: Male
  Weight: 63 kg

DRUGS (5)
  1. EUPRESSYL [Concomitant]
     Dosage: 60 MG/DAY, UNK
     Dates: start: 20101028, end: 20110331
  2. METOPROLOL TARTRATE [Concomitant]
     Dosage: 20 MG/DAY, UNK
     Dates: start: 20020101
  3. CLOPIDOGREL [Concomitant]
     Dosage: 75 MG/DAY, UNK
     Dates: start: 20101028
  4. RASILEZ [Suspect]
     Indication: HYPERTENSION
     Dosage: 1 DF, UNK
     Dates: start: 20101129, end: 20110331
  5. PHYSIOTENS ^GIULINI^ [Concomitant]
     Dosage: 0.4 MG PER DAY, UNK
     Dates: start: 20101213

REACTIONS (4)
  - HYPONATRAEMIA [None]
  - BLOOD ELECTROLYTES INCREASED [None]
  - RENAL FAILURE [None]
  - CARDIAC FAILURE [None]
